FAERS Safety Report 4285365-6 (Version None)
Quarter: 2004Q1

REPORT INFORMATION
  Report Type: 
  Country: None (occurrence: None)
  Receive Date: 20040202
  Receipt Date: 20040120
  Transmission Date: 20041129
  Serious: Yes (Other)
  Sender: FDA-Public Use
  Company Number: 2004195403GR

PATIENT
  Age: 54 Year
  Sex: Female

DRUGS (4)
  1. MEDROL [Suspect]
     Dosage: 48 MG
  2. MYCOPHENOLATE MOFETIL (MYCOPHENOLATE MOFETIL) [Concomitant]
  3. PERINDOPRIL (PERINDOPRIL) [Concomitant]
  4. FUROSEMIDE [Concomitant]

REACTIONS (2)
  - HAEMODIALYSIS [None]
  - RENAL IMPAIRMENT [None]
